FAERS Safety Report 8818896 (Version 1)
Quarter: 2012Q4

REPORT INFORMATION
  Report Type: 
  Country: US (occurrence: US)
  Receive Date: 20121001
  Receipt Date: 20121001
  Transmission Date: 20130627
  Serious: Yes (Other)
  Sender: FDA-Public Use
  Company Number: PHEH2012US014322

PATIENT
  Age: 35 Year
  Sex: Female

DRUGS (6)
  1. AFINITOR [Suspect]
     Indication: TUBEROUS SCLEROSIS
     Dosage: 7.5 mg, daily
     Route: 048
     Dates: start: 20120127
  2. CARBATROL [Interacting]
  3. LAMICTAL [Concomitant]
  4. NEXIUM [Concomitant]
  5. SYNTHROID [Concomitant]
  6. ARANESP [Concomitant]

REACTIONS (2)
  - Convulsion [Recovering/Resolving]
  - Drug interaction [Recovering/Resolving]
